FAERS Safety Report 5989280-9 (Version None)
Quarter: 2008Q4

REPORT INFORMATION
  Report Type: 
  Country: None (occurrence: None)
  Receive Date: 20081205
  Receipt Date: 20081108
  Transmission Date: 20090506
  Serious: Yes (Other)
  Sender: FDA-Public Use
  Company Number: 20605

PATIENT
  Age: 69 Year
  Sex: Male

DRUGS (3)
  1. FLUOROURACIL [Suspect]
     Dosage: 400 MG/M2 FREQ 600 MG/M2 FREQ
  2. LEDERFOLIN [Suspect]
     Dosage: 200 MG/M2 FREQ
  3. IRINOTECAN HYDROCHLORIDE [Suspect]
     Dosage: 180 MG/M2 FREQ

REACTIONS (5)
  - BLOOD BILIRUBIN INCREASED [None]
  - FEBRILE NEUTROPENIA [None]
  - JAUNDICE [None]
  - MALAISE [None]
  - VOMITING [None]
